FAERS Safety Report 12073216 (Version 1)
Quarter: 2016Q1

REPORT INFORMATION
  Report Type: Spontaneous
  Country: US (occurrence: None)
  Receive Date: 20160211
  Receipt Date: 20160211
  Transmission Date: 20160526
  Serious: Yes (Disabling)
  Sender: FDA-Public Use
  Company Number: None

PATIENT
  Age: 56 Year
  Sex: Female
  Weight: 54.43 kg

DRUGS (17)
  1. PROGRAF [Concomitant]
     Active Substance: TACROLIMUS\TACROLIMUS ANHYDROUS
  2. TRAZODONE [Concomitant]
     Active Substance: TRAZODONE HYDROCHLORIDE
  3. BABY ASPIRIN [Concomitant]
     Active Substance: ASPIRIN
  4. FISH OIL [Concomitant]
     Active Substance: FISH OIL
  5. AZITHROMYCIN PFIZER [Suspect]
     Active Substance: AZITHROMYCIN ANHYDROUS
     Indication: INFECTION PROPHYLAXIS
     Dosage: 1 PILL MWF TAKEN BY MOUTH
     Route: 048
     Dates: start: 20000420, end: 20160115
  6. AZITHROMYCIN PFIZER [Suspect]
     Active Substance: AZITHROMYCIN ANHYDROUS
     Indication: LUNG TRANSPLANT
     Dosage: 1 PILL MWF TAKEN BY MOUTH
     Route: 048
     Dates: start: 20000420, end: 20160115
  7. VALTREX [Concomitant]
     Active Substance: VALACYCLOVIR HYDROCHLORIDE
  8. PREDNISONE. [Concomitant]
     Active Substance: PREDNISONE
  9. CALCIUM [Concomitant]
     Active Substance: CALCIUM
  10. AMLODIPINE [Concomitant]
     Active Substance: AMLODIPINE BESYLATE
  11. PANTOPRAZOLE [Concomitant]
     Active Substance: PANTOPRAZOLE SODIUM
  12. MULTI VITAMIN [Concomitant]
     Active Substance: VITAMINS
  13. AZATHIOPRINE. [Concomitant]
     Active Substance: AZATHIOPRINE
  14. WELLBUTRIN [Concomitant]
     Active Substance: BUPROPION HYDROCHLORIDE
  15. VITAMIN D [Concomitant]
     Active Substance: CHOLECALCIFEROL
  16. BACTRIM/SULFA [Concomitant]
  17. VIT B [Concomitant]
     Active Substance: VITAMIN B

REACTIONS (1)
  - Hypoacusis [None]

NARRATIVE: CASE EVENT DATE: 20151215
